FAERS Safety Report 23313783 (Version 1)
Quarter: 2023Q4

REPORT INFORMATION
  Report Type: Spontaneous
  Country: None (occurrence: US)
  Receive Date: 20231219
  Receipt Date: 20231219
  Transmission Date: 20240110
  Serious: No
  Sender: FDA-Public Use
  Company Number: US-Ascend Therapeutics US, LLC-2149505

PATIENT
  Age: 23 Year
  Sex: Female
  Weight: 111 kg

DRUGS (3)
  1. ANDROGEL 1% [Suspect]
     Active Substance: TESTOSTERONE
     Indication: Transgender hormonal therapy
     Route: 065
  2. TESTOSTERONE [Suspect]
     Active Substance: TESTOSTERONE
     Route: 065
  3. PROGESTERONE [Suspect]
     Active Substance: PROGESTERONE
     Route: 048

REACTIONS (4)
  - Irritability [Unknown]
  - Anger [Unknown]
  - Drug ineffective for unapproved indication [Unknown]
  - Off label use [Unknown]
